FAERS Safety Report 6620436-8 (Version None)
Quarter: 2010Q1

REPORT INFORMATION
  Report Type: 
  Country: None (occurrence: None)
  Receive Date: 20100309
  Receipt Date: 20100225
  Transmission Date: 20100710
  Serious: Yes (Other)
  Sender: FDA-Public Use
  Company Number: US-PFIZER INC-2010004773

PATIENT
  Sex: Male

DRUGS (1)
  1. LYRICA [Suspect]
     Dosage: 50 MG, 2X/DAY
     Dates: end: 20100101

REACTIONS (10)
  - ANXIETY [None]
  - ASTHENIA [None]
  - DIARRHOEA [None]
  - DRUG INEFFECTIVE [None]
  - DRY MOUTH [None]
  - GAIT DISTURBANCE [None]
  - MUSCULAR WEAKNESS [None]
  - OEDEMA [None]
  - PAIN [None]
  - WITHDRAWAL SYNDROME [None]
